FAERS Safety Report 21300948 (Version 1)
Quarter: 2022Q3

REPORT INFORMATION
  Report Type: Spontaneous
  Country: ES (occurrence: ES)
  Receive Date: 20220907
  Receipt Date: 20220907
  Transmission Date: 20221027
  Serious: Yes (Hospitalization, Other)
  Sender: FDA-Public Use
  Company Number: ES-AEMPS-1252592

PATIENT
  Age: 71 Year
  Sex: Male

DRUGS (3)
  1. AMIODARONE [Interacting]
     Active Substance: AMIODARONE
     Indication: Ventricular tachycardia
     Dosage: 200 MILLIGRAM, 3 TIMES A DAY
     Route: 048
     Dates: start: 20220609, end: 20220615
  2. CARVEDILOL [Interacting]
     Active Substance: CARVEDILOL
     Indication: Atrial fibrillation
     Dosage: 9.37 MILLIGRAM, ONCE A DAY
     Route: 048
     Dates: start: 20220527, end: 20220615
  3. DIGOXIN [Interacting]
     Active Substance: DIGOXIN
     Indication: Atrial fibrillation
     Dosage: 0.25 MILLIGRAM, ONCE A DAY, (5 DAYS A WEEK)
     Route: 048
     Dates: start: 20220608, end: 20220615

REACTIONS (1)
  - Atrioventricular block complete [Recovered/Resolved]

NARRATIVE: CASE EVENT DATE: 20220615
